FAERS Safety Report 4271594-4 (Version None)
Quarter: 2004Q1

REPORT INFORMATION
  Report Type: 
  Country: None (occurrence: None)
  Receive Date: 20040113
  Receipt Date: 20031231
  Transmission Date: 20041129
  Serious: Yes (Death, Other)
  Sender: FDA-Public Use
  Company Number: STA-AE-03-MTX-220

PATIENT
  Age: 14 Year
  Sex: Male

DRUGS (3)
  1. METHOTREXATE [Suspect]
     Indication: JUVENILE ARTHRITIS
  2. CHLORAMBUCIL (CHLORAMBUCIL, ) [Suspect]
     Indication: JUVENILE ARTHRITIS
  3. CORTISONE (CORTISONE, ) [Suspect]
     Indication: JUVENILE ARTHRITIS

REACTIONS (13)
  - ACUTE MYELOID LEUKAEMIA [None]
  - ANAEMIA [None]
  - ARTHRALGIA [None]
  - BONE MARROW TRANSPLANT [None]
  - EXANTHEM [None]
  - INFECTION [None]
  - LEUKAEMIA [None]
  - LEUKOCYTOSIS [None]
  - MULTI-ORGAN FAILURE [None]
  - PYREXIA [None]
  - SEPSIS [None]
  - THERAPY NON-RESPONDER [None]
  - THROMBOCYTOPENIA [None]
